FAERS Safety Report 6591477-4 (Version None)
Quarter: 2010Q1

REPORT INFORMATION
  Report Type: 
  Country: None (occurrence: None)
  Receive Date: 20100219
  Receipt Date: 20100212
  Transmission Date: 20100710
  Serious: Yes (Death)
  Sender: FDA-Public Use
  Company Number: JP-GENENTECH-296660

PATIENT
  Sex: Male
  Weight: 69 kg

DRUGS (16)
  1. XOLAIR [Suspect]
     Indication: ASTHMA
     Dosage: 300 MG, Q2W
     Route: 058
     Dates: start: 20090607
  2. XOLAIR [Suspect]
     Dosage: 300 MG, Q2W
     Dates: start: 20090630
  3. XOLAIR [Suspect]
     Dosage: 300 MG, Q2W
     Dates: start: 20090714
  4. XOLAIR [Suspect]
     Dosage: 300 MG, Q2W
     Dates: start: 20090728
  5. XOLAIR [Suspect]
     Dosage: 300 MG, Q2W
     Dates: start: 20090811
  6. XOLAIR [Suspect]
     Dosage: 300 MG, Q2W
     Dates: start: 20090901
  7. XOLAIR [Suspect]
     Dosage: 300 MG, Q2W
     Dates: start: 20090915
  8. XOLAIR [Suspect]
     Dosage: 300 MG, Q2W
     Dates: start: 20091001
  9. XOLAIR [Suspect]
     Dosage: 300 MG, Q2W
     Dates: start: 20091015
  10. DECADRON [Suspect]
     Indication: ASTHMA
     Dosage: 0.5 MG, UNK
     Route: 048
     Dates: start: 20090522, end: 20091126
  11. ZOSYN [Suspect]
     Indication: DRUG USE FOR UNKNOWN INDICATION
     Dosage: 4.5 G, UNK
     Dates: start: 20091019, end: 20091028
  12. SPIRIVA [Concomitant]
     Indication: DRUG USE FOR UNKNOWN INDICATION
     Dosage: UNK
     Dates: start: 20091116, end: 20091126
  13. FLUTICASONE PROPIONATE/SALMETEROL XINAFOATE [Concomitant]
     Indication: DRUG USE FOR UNKNOWN INDICATION
     Dosage: UNK
     Dates: start: 20090522, end: 20091126
  14. SINGULAIR [Concomitant]
     Indication: DRUG USE FOR UNKNOWN INDICATION
     Dosage: UNK
     Dates: start: 20090522, end: 20091126
  15. THEOPHYLLINE [Concomitant]
     Indication: DRUG USE FOR UNKNOWN INDICATION
     Dosage: UNK
     Dates: start: 20090522, end: 20091126
  16. MEROPEN (JAPAN) [Concomitant]
     Indication: DRUG USE FOR UNKNOWN INDICATION
     Dosage: UNK
     Dates: start: 20090927, end: 20091011

REACTIONS (2)
  - CHRONIC OBSTRUCTIVE PULMONARY DISEASE [None]
  - PNEUMONIA [None]
